FAERS Safety Report 8341578-5 (Version None)
Quarter: 2012Q2

REPORT INFORMATION
  Report Type: 
  Country: None (occurrence: None)
  Receive Date: 20120507
  Receipt Date: 20120502
  Transmission Date: 20120825
  Serious: No
  Sender: FDA-Public Use
  Company Number: US-PFIZER INC-2012108163

PATIENT
  Sex: Female
  Weight: 55 kg

DRUGS (17)
  1. SUMATRIPTAN [Concomitant]
     Indication: MIGRAINE
     Dosage: UNK
  2. PREMARIN [Suspect]
     Indication: VULVOVAGINAL DRYNESS
     Dosage: UNK, 1X/DAY
     Route: 067
  3. CALCIUM [Concomitant]
     Dosage: UNK
  4. CYPROHEPTADINE [Concomitant]
     Dosage: UNK
  5. TRAZODONE [Concomitant]
     Dosage: UNK
  6. VITAMIN D [Concomitant]
     Dosage: UNK
  7. TOPAMAX [Concomitant]
     Dosage: UNK
  8. LYRICA [Concomitant]
     Dosage: UNK
  9. MULTI-VITAMINS [Concomitant]
     Indication: NEUROTRANSMITTER LEVEL ALTERED
     Dosage: UNK
  10. MULTI-VITAMINS [Concomitant]
     Dosage: UNK
  11. INDOMETHACIN [Concomitant]
     Dosage: UNK
  12. DIAZEPAM [Concomitant]
     Dosage: UNK, AS NEEDED
  13. SYNTHROID [Concomitant]
     Dosage: UNK
  14. PREVACID [Concomitant]
     Dosage: UNK
  15. CYMBALTA [Concomitant]
     Dosage: UNK
  16. VITAMIN E [Concomitant]
     Dosage: UNK
  17. NAPROXEN [Concomitant]
     Indication: MIGRAINE
     Dosage: UNK

REACTIONS (1)
  - VULVOVAGINAL MYCOTIC INFECTION [None]
